FAERS Safety Report 18207895 (Version 1)
Quarter: 2020Q3

REPORT INFORMATION
  Report Type: Spontaneous
  Country: US (occurrence: US)
  Receive Date: 20200828
  Receipt Date: 20200828
  Transmission Date: 20201103
  Serious: Yes (Other)
  Sender: FDA-Public Use
  Company Number: US-USWM, LLC-USW202005-001040

PATIENT
  Age: 63 Year
  Sex: Male

DRUGS (5)
  1. CRESTOR [Concomitant]
     Active Substance: ROSUVASTATIN CALCIUM
     Indication: HYPERLIPIDAEMIA
     Dosage: UNKNOWN
  2. TOPROL XL [Concomitant]
     Active Substance: METOPROLOL SUCCINATE
     Indication: HEART RATE ABNORMAL
  3. CARTIA [Concomitant]
     Indication: HYPERTENSION
  4. NIACIN. [Concomitant]
     Active Substance: NIACIN
     Indication: NEUROPATHY PERIPHERAL
     Dosage: UNKNOWN
  5. LUCEMYRA [Suspect]
     Active Substance: LOFEXIDINE
     Indication: DRUG WITHDRAWAL SYNDROME
     Dosage: FOR 9 DAYS
     Dates: start: 20200508, end: 20200516

REACTIONS (22)
  - Blood sodium decreased [Unknown]
  - Abdominal pain [Unknown]
  - Confusional state [Unknown]
  - Insomnia [Unknown]
  - Bradycardia [Unknown]
  - Vomiting [Unknown]
  - Agitation [Unknown]
  - Pollakiuria [Unknown]
  - Vision blurred [Unknown]
  - Neuralgia [Unknown]
  - Blood urea nitrogen/creatinine ratio increased [Unknown]
  - Tonic clonic movements [Unknown]
  - Fall [Unknown]
  - Retching [Unknown]
  - Orthostatic hypertension [Unknown]
  - Anger [Unknown]
  - Diarrhoea [Unknown]
  - Blood pressure decreased [Unknown]
  - Flatulence [Unknown]
  - Blood potassium decreased [Unknown]
  - Fatigue [Unknown]
  - Product odour abnormal [Unknown]

NARRATIVE: CASE EVENT DATE: 202005
